FAERS Safety Report 8986678 (Version 1)
Quarter: 2012Q4

REPORT INFORMATION
  Report Type: Spontaneous
  Country: US (occurrence: None)
  Receive Date: 20121217
  Receipt Date: 20121217
  Transmission Date: 20130627
  Serious: Yes (Hospitalization)
  Sender: FDA-Public Use
  Company Number: TPA2012A09702

PATIENT
  Age: 58 Year
  Sex: Male
  Weight: 113.4 kg

DRUGS (1)
  1. DEXILANT [Suspect]
     Indication: ACID REFLUX (ESOPHAGEAL)
     Route: 048
     Dates: start: 2009, end: 2010

REACTIONS (7)
  - Blood pressure increased [None]
  - Blood glucose increased [None]
  - Heart rate increased [None]
  - Renal failure [None]
  - Fatigue [None]
  - Asthenia [None]
  - Apparent death [None]
